FAERS Safety Report 19182464 (Version 2)
Quarter: 2022Q1

REPORT INFORMATION
  Report Type: Other
  Country: US (occurrence: None)
  Receive Date: 20210427
  Receipt Date: 20220302
  Transmission Date: 20220424
  Serious: No
  Sender: FDA-Public Use
  Company Number: US-ROCHE-2817036

PATIENT
  Age: 39 Year
  Sex: Female
  Weight: 86.260 kg

DRUGS (3)
  1. OCREVUS [Suspect]
     Active Substance: OCRELIZUMAB
     Indication: Relapsing-remitting multiple sclerosis
     Dosage: DATE OF TREATMENT: 04/OCT/2019, 10/OCT/2019, 20/MAR/2020, 02/OCT/2020 AND 02/APR/2021, 04/OCT/2021,
     Route: 042
     Dates: start: 201909
  2. OCREVUS [Suspect]
     Active Substance: OCRELIZUMAB
     Dosage: ON DAY 1 AND DAY 15 THEN 600 MG EVERY 6 MONTHS
     Route: 065
  3. BENADRYL [Concomitant]
     Active Substance: DIPHENHYDRAMINE HYDROCHLORIDE
     Indication: Premedication

REACTIONS (4)
  - COVID-19 [Unknown]
  - Fatigue [Unknown]
  - Infusion related reaction [Recovered/Resolved]
  - Asthenia [Recovered/Resolved]

NARRATIVE: CASE EVENT DATE: 20190901
